FAERS Safety Report 21626280 (Version 1)
Quarter: 2022Q4

REPORT INFORMATION
  Report Type: Spontaneous
  Country: IE (occurrence: IE)
  Receive Date: 20221122
  Receipt Date: 20221122
  Transmission Date: 20230113
  Serious: Yes (Other)
  Sender: FDA-Public Use
  Company Number: IE-002147023-NVSC2022IE259979

PATIENT

DRUGS (2)
  1. LUTATHERA [Suspect]
     Active Substance: LUTETIUM OXODOTREOTIDE LU-177
     Indication: Neuroendocrine tumour
     Dosage: 7.4 GBQ (IN EACH CYCLE) (SECOND LINE THERAPY) SIX CYCLES
     Route: 065
  2. NITROGEN [Concomitant]
     Active Substance: NITROGEN
     Indication: Renal disorder prophylaxis
     Dosage: 14 G/L
     Route: 065

REACTIONS (2)
  - Chronic myeloid leukaemia [Unknown]
  - Second primary malignancy [Unknown]
